FAERS Safety Report 8321971-7 (Version None)
Quarter: 2012Q2

REPORT INFORMATION
  Report Type: 
  Country: None (occurrence: None)
  Receive Date: 20120430
  Receipt Date: 20120425
  Transmission Date: 20120825
  Serious: Yes (Death, Hospitalization)
  Sender: FDA-Public Use
  Company Number: US-ROCHE-1031022

PATIENT
  Sex: Male
  Weight: 93.07 kg

DRUGS (6)
  1. NEURONTIN [Concomitant]
     Indication: NEUROPATHY PERIPHERAL
     Route: 048
     Dates: start: 20111010
  2. MS CONTIN [Concomitant]
     Indication: PAIN
     Route: 048
     Dates: start: 20111017
  3. MORPHINE SULFATE [Concomitant]
     Indication: PAIN
     Dosage: DOSE 10 TO 20 MG
     Dates: start: 20111129
  4. OXYCODONE HCL [Concomitant]
     Indication: PAIN
     Route: 048
  5. ZELBORAF [Suspect]
     Indication: MALIGNANT MELANOMA
     Route: 048
     Dates: start: 20111017
  6. ZOFRAN [Concomitant]
     Indication: NAUSEA
     Route: 048
     Dates: start: 20111017

REACTIONS (3)
  - DEHYDRATION [None]
  - LIVER FUNCTION TEST ABNORMAL [None]
  - CARDIAC FAILURE [None]
